FAERS Safety Report 10158702 (Version 2)
Quarter: 2014Q2

REPORT INFORMATION
  Report Type: Report from Study
  Country: US (occurrence: US)
  Receive Date: 20140508
  Receipt Date: 20140508
  Transmission Date: 20141212
  Serious: Yes (Hospitalization)
  Sender: FDA-Public Use
  Company Number: US-CELGENEUS-163-10004-12040321

PATIENT
  Age: 69 Year
  Sex: Female
  Weight: 62.2 kg

DRUGS (5)
  1. CC-10004 [Suspect]
     Indication: PSORIASIS
     Dosage: 30 MILLIGRAM
     Route: 048
     Dates: start: 20111109
  2. CC-10004 [Suspect]
     Route: 048
     Dates: start: 20120322, end: 20120403
  3. LOTREL [Concomitant]
     Indication: HYPERTENSION
     Dosage: 20 MILLIGRAM
     Route: 048
     Dates: start: 20061221
  4. ASA [Concomitant]
     Indication: CARDIOVASCULAR EVENT PROPHYLAXIS
     Dosage: 81 MILLIGRAM
     Route: 065
  5. ANTIBIOTICS [Concomitant]
     Indication: URINARY TRACT INFECTION
     Route: 065

REACTIONS (1)
  - Duodenal ulcer haemorrhage [Recovered/Resolved with Sequelae]
